FAERS Safety Report 19739502 (Version 1)
Quarter: 2021Q3

REPORT INFORMATION
  Report Type: Spontaneous
  Country: FR (occurrence: FR)
  Receive Date: 20210823
  Receipt Date: 20210823
  Transmission Date: 20211014
  Serious: Yes (Hospitalization)
  Sender: FDA-Public Use
  Company Number: FR-MYLANLABS-2021M1054104

PATIENT
  Age: 59 Year
  Sex: Female

DRUGS (3)
  1. OXALIPLATIN. [Suspect]
     Active Substance: OXALIPLATIN
     Indication: GASTRIC CANCER
     Dosage: 85 MILLIGRAM/SQ. METER, 85MG / M2 OR 156MG EVERY 2 WEEKS
     Route: 042
     Dates: start: 20210301
  2. FLUOROURACIL MYLAN [Suspect]
     Active Substance: FLUOROURACIL
     Indication: GASTRIC CANCER
     Dosage: 1950 MILLIGRAM/SQ. METER, 1950MG/M2 OR 3568MG
     Route: 042
     Dates: start: 20210301
  3. DOCETAXEL. [Suspect]
     Active Substance: DOCETAXEL
     Indication: GASTRIC CANCER
     Dosage: 50 MILLIGRAM/SQ. METER, 50MG/M2 OR 91.5,G EVERY 2 WEEKS
     Route: 042
     Dates: start: 20210301

REACTIONS (2)
  - Erythema [Recovering/Resolving]
  - Pyrexia [Recovering/Resolving]

NARRATIVE: CASE EVENT DATE: 20210301
